FAERS Safety Report 13066691 (Version 3)
Quarter: 2017Q1

REPORT INFORMATION
  Report Type: Spontaneous
  Country: DE (occurrence: DE)
  Receive Date: 20161227
  Receipt Date: 20170208
  Transmission Date: 20170428
  Serious: Yes (Hospitalization, Other)
  Sender: FDA-Public Use
  Company Number: DE-TEVA-723290ROM

PATIENT
  Age: 61 Year
  Sex: Male
  Weight: 92 kg

DRUGS (25)
  1. TOREM [Concomitant]
     Active Substance: TORSEMIDE
     Indication: HYPERTENSION
  2. GRANISETRON [Concomitant]
     Active Substance: GRANISETRON
     Dates: start: 20161121, end: 20161121
  3. PACLITAXEL. [Suspect]
     Active Substance: PACLITAXEL
     Indication: NON-SMALL CELL LUNG CANCER STAGE IV
     Dosage: 402 MILLIGRAM DAILY;
     Route: 042
     Dates: start: 20161109, end: 20161109
  4. BELOC-ZOK MIITE [Concomitant]
     Indication: HYPERTENSION
  5. PANTOZOL [Concomitant]
     Active Substance: PANTOPRAZOLE SODIUM
     Indication: PROPHYLAXIS
  6. MIRTAZAPIN [Concomitant]
     Active Substance: MIRTAZAPINE
     Indication: INSOMNIA
  7. FOLSAN [Concomitant]
     Active Substance: FOLIC ACID
     Indication: FOLATE DEFICIENCY
  8. GRANISETRON [Concomitant]
     Active Substance: GRANISETRON
     Indication: PROPHYLACTIC CHEMOTHERAPY
     Dates: start: 20161109, end: 20161109
  9. RANITIDIN [Concomitant]
     Active Substance: RANITIDINE HYDROCHLORIDE
     Dates: start: 20161130, end: 20161130
  10. RANITIDIN [Concomitant]
     Active Substance: RANITIDINE HYDROCHLORIDE
     Dates: start: 20161221, end: 20161221
  11. APREPITANT. [Concomitant]
     Active Substance: APREPITANT
     Dates: start: 20161221, end: 20161221
  12. CLEMASTINE [Concomitant]
     Active Substance: CLEMASTINE
     Dates: start: 20161221, end: 20161221
  13. ATEZOLIZUMAB [Suspect]
     Active Substance: ATEZOLIZUMAB
     Indication: NON-SMALL CELL LUNG CANCER STAGE IV
     Dosage: 1200 MILLIGRAM DAILY;
     Route: 042
     Dates: start: 20161109, end: 20161109
  14. TAMSULOSIN [Concomitant]
     Active Substance: TAMSULOSIN
     Indication: BENIGN PROSTATIC HYPERPLASIA
  15. GRANISETRON [Concomitant]
     Active Substance: GRANISETRON
     Dates: start: 20161130, end: 20161130
  16. RANITIDIN [Concomitant]
     Active Substance: RANITIDINE HYDROCHLORIDE
     Indication: PROPHYLACTIC CHEMOTHERAPY
     Dates: start: 20161109, end: 20161109
  17. COTRIM FORTE [Concomitant]
     Active Substance: SULFAMETHOXAZOLE\TRIMETHOPRIM
     Indication: INFECTION
  18. TRIAMTEREN COMP [Concomitant]
     Indication: HYPERTENSION
  19. CLEMASTINE [Concomitant]
     Active Substance: CLEMASTINE
     Dates: start: 20161130, end: 20161130
  20. ULTIBRO [Concomitant]
     Active Substance: GLYCOPYRRONIUM\INDACATEROL
     Indication: CHRONIC OBSTRUCTIVE PULMONARY DISEASE
  21. APREPITANT. [Concomitant]
     Active Substance: APREPITANT
     Dates: start: 20161130, end: 20161130
  22. CLEMASTINE [Concomitant]
     Active Substance: CLEMASTINE
     Indication: PROPHYLACTIC CHEMOTHERAPY
     Dates: start: 20161109, end: 20161109
  23. CARBOPLATIN. [Suspect]
     Active Substance: CARBOPLATIN
     Indication: NON-SMALL CELL LUNG CANCER STAGE IV
     Dosage: 583 MILLIGRAM DAILY;
     Route: 042
     Dates: start: 20161109, end: 20161109
  24. RAMILICH [Concomitant]
     Active Substance: RAMIPRIL
     Indication: HYPERTENSION
  25. APREPITANT. [Concomitant]
     Active Substance: APREPITANT
     Indication: PROPHYLACTIC CHEMOTHERAPY
     Dates: start: 20161109, end: 20161109

REACTIONS (5)
  - Acute kidney injury [Recovering/Resolving]
  - Hypokalaemia [Recovered/Resolved]
  - Diarrhoea [Recovered/Resolved]
  - Dehydration [Recovered/Resolved]
  - Hyponatraemia [Recovered/Resolved]

NARRATIVE: CASE EVENT DATE: 20161112
